FAERS Safety Report 8916312 (Version 1)
Quarter: 2012Q4

REPORT INFORMATION
  Report Type: 
  Country: US (occurrence: US)
  Receive Date: 20121120
  Receipt Date: 20121120
  Transmission Date: 20130627
  Serious: Yes (Hospitalization)
  Sender: FDA-Public Use
  Company Number: PHEH2012US022663

PATIENT
  Sex: Male

DRUGS (1)
  1. TEGRETOL [Suspect]

REACTIONS (1)
  - Mental disorder [Unknown]
